FAERS Safety Report 8614309 (Version 4)
Quarter: 2014Q1

REPORT INFORMATION
  Report Type: Spontaneous
  Country: US (occurrence: US)
  Receive Date: 20120614
  Receipt Date: 20140328
  Transmission Date: 20141002
  Serious: No
  Sender: FDA-Public Use
  Company Number: US-ASTRAZENECA-2012SE35242

PATIENT
  Age: 669 Month
  Sex: Female
  Weight: 63.5 kg

DRUGS (18)
  1. NEXIUM [Suspect]
     Route: 048
     Dates: start: 20091013
  2. NEXIUM [Suspect]
     Route: 048
     Dates: start: 2010
  3. NEXIUM [Suspect]
     Route: 048
     Dates: start: 20110413
  4. CARVEDILOL [Concomitant]
     Dates: start: 20091230
  5. METOCLOPRAMIDE [Concomitant]
     Dates: start: 20091013
  6. ATORVASTATIN [Concomitant]
  7. LOSARTAN POTASSIUM [Concomitant]
  8. METOPROLOL SUCCER [Concomitant]
     Route: 048
  9. JANUVIA [Concomitant]
  10. EVISTA [Concomitant]
  11. FISH OILD OMEGA 3 [Concomitant]
  12. CALCIUM WITH VIT D3 [Concomitant]
  13. VITAMIN C [Concomitant]
  14. PREMARIN [Concomitant]
     Dates: start: 20091230
  15. ACTOS [Concomitant]
     Dates: start: 20101005
  16. AMOXICILLIN [Concomitant]
     Dates: start: 20091230
  17. CIPROFLOXACIN HCL [Concomitant]
     Dates: start: 20100919
  18. FLUCONAZOLE [Concomitant]
     Dates: start: 20100901

REACTIONS (3)
  - Osteoporosis [Unknown]
  - Multiple fractures [Unknown]
  - Osteoporosis postmenopausal [Unknown]
